FAERS Safety Report 5485177-1 (Version None)
Quarter: 2007Q4

REPORT INFORMATION
  Report Type: 
  Country: None (occurrence: None)
  Receive Date: 20071011
  Receipt Date: 20070926
  Transmission Date: 20080405
  Serious: Yes (Hospitalization, Other)
  Sender: FDA-Public Use
  Company Number: 2007S1000304

PATIENT
  Age: 37 Year
  Sex: Male
  Weight: 103.6 kg

DRUGS (5)
  1. CUBICIN [Suspect]
     Indication: ENDOCARDITIS STAPHYLOCOCCAL
     Dosage: 6 MG/KG;Q24H;IV
     Route: 042
     Dates: start: 20070605, end: 20070712
  2. CEFUROXIME [Concomitant]
  3. VANCOMYCIN [Concomitant]
  4. GENTAMICIN [Concomitant]
  5. CEFEPIME [Concomitant]

REACTIONS (5)
  - KLEBSIELLA BACTERAEMIA [None]
  - NEPHRITIS INTERSTITIAL [None]
  - RENAL FAILURE ACUTE [None]
  - URINARY TRACT INFECTION [None]
  - URINE KETONE BODY PRESENT [None]
